FAERS Safety Report 23134828 (Version 2)
Quarter: 2023Q4

REPORT INFORMATION
  Report Type: Spontaneous
  Country: DE (occurrence: DE)
  Receive Date: 20231101
  Receipt Date: 20231201
  Transmission Date: 20240110
  Serious: Yes (Hospitalization, Other)
  Sender: FDA-Public Use
  Company Number: DE-ABBVIE-5476467

PATIENT
  Age: 72 Year
  Sex: Male

DRUGS (5)
  1. IBRUTINIB [Suspect]
     Active Substance: IBRUTINIB
     Indication: Chronic lymphocytic leukaemia
     Dosage: 3 CYCLES OF IBRUTINIB; FORM STRENGTH: 420 MILLIGRAM
     Route: 048
     Dates: start: 202206, end: 202209
  2. IBRUTINIB [Suspect]
     Active Substance: IBRUTINIB
     Indication: Chronic lymphocytic leukaemia
     Dosage: FORM STRENGTH: 420 MILLIGRAM
     Route: 048
     Dates: start: 202209, end: 202211
  3. IBRUTINIB [Suspect]
     Active Substance: IBRUTINIB
     Indication: Chronic lymphocytic leukaemia
     Dosage: FORM STRENGTH: 420 MILLIGRAM
     Route: 048
     Dates: start: 202211, end: 202212
  4. VENETOCLAX [Suspect]
     Active Substance: VENETOCLAX
     Indication: Chronic lymphocytic leukaemia
     Route: 048
     Dates: start: 202209, end: 202211
  5. VENETOCLAX [Suspect]
     Active Substance: VENETOCLAX
     Indication: Chronic lymphocytic leukaemia
     Route: 048
     Dates: start: 202212, end: 202303

REACTIONS (19)
  - Erysipelas [Recovered/Resolved]
  - Coronary artery stenosis [Recovering/Resolving]
  - Erysipelas [Recovered/Resolved]
  - Aortic aneurysm [Recovering/Resolving]
  - Gout [Recovering/Resolving]
  - Atrial fibrillation [Recovered/Resolved]
  - Hypertension [Unknown]
  - Dyspnoea exertional [Not Recovered/Not Resolved]
  - Arrhythmia [Recovering/Resolving]
  - Pulseless electrical activity [Recovering/Resolving]
  - Atrial fibrillation [Recovered/Resolved]
  - Atrial fibrillation [Recovering/Resolving]
  - Atrial fibrillation [Recovered/Resolved]
  - Bradycardia [Recovering/Resolving]
  - Stress [Recovering/Resolving]
  - Microcytic anaemia [Recovering/Resolving]
  - Left ventricular dilatation [Recovering/Resolving]
  - Left ventricular dysfunction [Recovering/Resolving]
  - Left ventricular failure [Recovering/Resolving]

NARRATIVE: CASE EVENT DATE: 20220101
